FAERS Safety Report 6336659-1 (Version None)
Quarter: 2009Q3

REPORT INFORMATION
  Report Type: 
  Country: None (occurrence: None)
  Receive Date: 20090831
  Receipt Date: 20090831
  Transmission Date: 20100115
  Serious: Yes (Hospitalization)
  Sender: FDA-Public Use
  Company Number: None

PATIENT
  Age: 61 Year
  Sex: Female
  Weight: 4.1277 kg

DRUGS (1)
  1. TRIMETHOPRIM [Suspect]
     Indication: URINARY TRACT INFECTION
     Dosage: 200MG TWICE DAILY PO
     Route: 048
     Dates: start: 20090827, end: 20090828

REACTIONS (10)
  - ASTHENIA [None]
  - BLINDNESS [None]
  - DISORIENTATION [None]
  - EAR PAIN [None]
  - HYPERACUSIS [None]
  - MENINGITIS ASEPTIC [None]
  - NAUSEA [None]
  - RHINORRHOEA [None]
  - TOOTHACHE [None]
  - TREMOR [None]
